FAERS Safety Report 12665456 (Version 3)
Quarter: 2016Q4

REPORT INFORMATION
  Report Type: Spontaneous
  Country: NG (occurrence: NG)
  Receive Date: 20160818
  Receipt Date: 20161122
  Transmission Date: 20170207
  Serious: Yes (Hospitalization)
  Sender: FDA-Public Use
  Company Number: NG-PFIZER INC-2016393066

PATIENT
  Age: 38 Year
  Sex: Male

DRUGS (5)
  1. FOLIC ACID. [Concomitant]
     Active Substance: FOLIC ACID
     Indication: VITAMIN SUPPLEMENTATION
     Dosage: UNK
  2. PREDNISOLONE. [Suspect]
     Active Substance: PREDNISOLONE
     Indication: RHEUMATOID ARTHRITIS
     Dosage: 15 MG, DAILY
  3. METHOTREXATE. [Concomitant]
     Active Substance: METHOTREXATE
     Indication: RHEUMATOID ARTHRITIS
     Dosage: 10 MG, WEEKLY
  4. LEFLUNOMIDE. [Concomitant]
     Active Substance: LEFLUNOMIDE
     Indication: RHEUMATOID ARTHRITIS
     Dosage: 20 MG, DAILY
  5. METHYLPREDNISOLONE SODIUM SUCCINATE. [Suspect]
     Active Substance: METHYLPREDNISOLONE SODIUM SUCCINATE
     Indication: PNEUMONITIS
     Dosage: 500 MG, DAILY
     Route: 042

REACTIONS (1)
  - Subcutaneous emphysema [Recovered/Resolved]
